FAERS Safety Report 15738918 (Version 2)
Quarter: 2019Q1

REPORT INFORMATION
  Report Type: Spontaneous
  Country: US (occurrence: US)
  Receive Date: 20181219
  Receipt Date: 20190212
  Transmission Date: 20190417
  Serious: No
  Sender: FDA-Public Use
  Company Number: US-CELGENEUS-USA-20181106618

PATIENT
  Sex: Male
  Weight: 79.45 kg

DRUGS (1)
  1. REVLIMID [Suspect]
     Active Substance: LENALIDOMIDE
     Indication: PLASMA CELL MYELOMA
     Dosage: 15 MILLIGRAM
     Route: 048
     Dates: start: 201802

REACTIONS (3)
  - Arthritis [Unknown]
  - Osteopenia [Unknown]
  - Back pain [Unknown]

NARRATIVE: CASE EVENT DATE: 2018
